FAERS Safety Report 19988133 (Version 1)
Quarter: 2021Q4

REPORT INFORMATION
  Report Type: Spontaneous
  Country: CA (occurrence: CA)
  Receive Date: 20211022
  Receipt Date: 20211022
  Transmission Date: 20220303
  Serious: Yes (Other)
  Sender: FDA-Public Use
  Company Number: CA-TAKEDA-2021TUS063825

PATIENT
  Age: 63 Year
  Sex: Male
  Weight: 136 kg

DRUGS (2)
  1. HUMAN IMMUNOGLOBULIN G [Suspect]
     Active Substance: HUMAN IMMUNOGLOBULIN G
     Indication: Chronic inflammatory demyelinating polyradiculoneuropathy
     Dosage: 48 GRAM, 1/WEEK
     Route: 058
  2. ACETAMINOPHEN\OXYCODONE HYDROCHLORIDE [Suspect]
     Active Substance: ACETAMINOPHEN\OXYCODONE HYDROCHLORIDE
     Indication: Product used for unknown indication
     Route: 065

REACTIONS (8)
  - Discomfort [Unknown]
  - Dyspnoea exertional [Unknown]
  - Hyperhidrosis [Unknown]
  - Malaise [Unknown]
  - Paraesthesia [Unknown]
  - Peripheral swelling [Unknown]
  - Weight increased [Unknown]
  - Withdrawal syndrome [Unknown]
